FAERS Safety Report 8030640-2 (Version None)
Quarter: 2012Q1

REPORT INFORMATION
  Report Type: 
  Country: None (occurrence: None)
  Receive Date: 20120105
  Receipt Date: 20111219
  Transmission Date: 20120608
  Serious: Yes (Hospitalization, Other)
  Sender: FDA-Public Use
  Company Number: 2011-4698

PATIENT
  Age: 7 Year
  Sex: Male
  Weight: 20.1 kg

DRUGS (4)
  1. INCRELEX [Suspect]
     Indication: PRIMARY INSULIN LIKE GROWTH FACTOR-1 DEFICIENCY
     Dosage: 48 UNITS (24 UNITS, 2 IN 1 D), SUBCUTANEOUS, 48 UNITS (24 UNITS, 2 IN 1 D), SUBCUTANEOUS
     Route: 058
     Dates: start: 20110711, end: 20111005
  2. INCRELEX [Suspect]
     Indication: PRIMARY INSULIN LIKE GROWTH FACTOR-1 DEFICIENCY
     Dosage: 48 UNITS (24 UNITS, 2 IN 1 D), SUBCUTANEOUS, 48 UNITS (24 UNITS, 2 IN 1 D), SUBCUTANEOUS
     Route: 058
     Dates: start: 20111114
  3. INCRELEX [Suspect]
     Indication: PRIMARY INSULIN LIKE GROWTH FACTOR-1 DEFICIENCY
     Dosage: 44 UNITS (22 UNITS, 2 IN 1 D), SUBCUTANEOUS, 44 UNITS (22 UNITS, 2 IN 1 D), SUBCUTANEOUS
     Route: 058
     Dates: end: 20110710
  4. INCRELEX [Suspect]
     Indication: PRIMARY INSULIN LIKE GROWTH FACTOR-1 DEFICIENCY
     Dosage: 44 UNITS (22 UNITS, 2 IN 1 D), SUBCUTANEOUS, 44 UNITS (22 UNITS, 2 IN 1 D), SUBCUTANEOUS
     Route: 058
     Dates: start: 20110517, end: 20110501

REACTIONS (9)
  - TIC [None]
  - PHARYNGITIS STREPTOCOCCAL [None]
  - ANAEMIA [None]
  - PYREXIA [None]
  - POST PROCEDURAL HAEMORRHAGE [None]
  - PAEDIATRIC AUTOIMMUNE NEUROPSYCHIATRIC DISORDERS ASSOCIATED WITH STREPTOCOCCAL INFECTION [None]
  - MOUTH ULCERATION [None]
  - HEADACHE [None]
  - OCULAR HYPERAEMIA [None]
